FAERS Safety Report 6424382-4 (Version None)
Quarter: 2009Q4

REPORT INFORMATION
  Report Type: 
  Country: None (occurrence: None)
  Receive Date: 20091103
  Receipt Date: 20091030
  Transmission Date: 20100525
  Serious: Yes (Other)
  Sender: FDA-Public Use
  Company Number: DE-JNJFOC-20091009116

PATIENT
  Sex: Female

DRUGS (3)
  1. DOLORMIN EXTRA [Suspect]
     Route: 048
  2. DOLORMIN EXTRA [Suspect]
     Indication: HEADACHE
     Route: 048
  3. ASPIRIN [Concomitant]

REACTIONS (3)
  - ANAPHYLACTIC SHOCK [None]
  - ERYTHEMA [None]
  - HYPERTENSION [None]
